FAERS Safety Report 20058106 (Version 1)
Quarter: 2021Q4

REPORT INFORMATION
  Report Type: Spontaneous
  Country: US (occurrence: US)
  Receive Date: 20211111
  Receipt Date: 20211111
  Transmission Date: 20220303
  Serious: No
  Sender: FDA-Public Use
  Company Number: US-BAYER-2021A247523

PATIENT
  Age: 16 Year
  Sex: Female
  Weight: 45 kg

DRUGS (1)
  1. MIRALAX [Suspect]
     Active Substance: POLYETHYLENE GLYCOL 3350
     Indication: Impaired gastric emptying
     Dosage: 8.30OZ BOTTLE WITH 2 QUARTS (64OZ) OF WATER EVERY 3 DAYS DOSE
     Route: 048

REACTIONS (2)
  - Diarrhoea [Unknown]
  - Off label use [Unknown]
